FAERS Safety Report 22324155 (Version 2)
Quarter: 2024Q1

REPORT INFORMATION
  Report Type: Spontaneous
  Country: US (occurrence: US)
  Receive Date: 20230516
  Receipt Date: 20240326
  Transmission Date: 20240410
  Serious: No
  Sender: FDA-Public Use
  Company Number: US-UNITED THERAPEUTICS-UNT-2023-005655

PATIENT
  Sex: Female
  Weight: 52.154 kg

DRUGS (5)
  1. TYVASO DPI [Suspect]
     Active Substance: TREPROSTINIL
     Indication: Pulmonary arterial hypertension
     Dosage: 64 ?G, QID
  2. TYVASO DPI [Suspect]
     Active Substance: TREPROSTINIL
     Dosage: UNK
     Dates: start: 20221201
  3. TYVASO DPI [Suspect]
     Active Substance: TREPROSTINIL
     Indication: Pulmonary arterial hypertension
     Dosage: UNK
  4. OFEV [Suspect]
     Active Substance: NINTEDANIB
     Indication: Idiopathic pulmonary fibrosis
     Dosage: 100 MG, QD
     Route: 048
     Dates: start: 2021
  5. OFEV [Suspect]
     Active Substance: NINTEDANIB
     Dosage: 150 MG, BID
     Route: 048
     Dates: start: 20220714

REACTIONS (6)
  - Cough [Unknown]
  - Chest pain [Unknown]
  - Back pain [Unknown]
  - Nausea [Unknown]
  - Diarrhoea [Unknown]
  - Abdominal pain upper [Recovered/Resolved]
